FAERS Safety Report 8147605-2 (Version None)
Quarter: 2012Q1

REPORT INFORMATION
  Report Type: 
  Country: None (occurrence: None)
  Receive Date: 20120218
  Receipt Date: 20120208
  Transmission Date: 20120608
  Serious: Yes (Death)
  Sender: FDA-Public Use
  Company Number: KR-ACCORD-012406

PATIENT

DRUGS (3)
  1. CISPLATIN [Suspect]
     Dosage: 2 HOUR INFUSION, ON DAY 1 OF EACH 28-DAY CYCLE
  2. GEMCITABINE [Suspect]
     Dosage: WEEKLY (DAYS 1, 8, AND 15) FOLLOWED BY A 1-WEEK REST PERIOD
  3. COMBINATIONS OF ANTINEOPLASTIC AGEN [Suspect]
     Dosage: FROM DAYS 1 TO 14 AND FROM DAYS 22 TO 35
     Route: 048

REACTIONS (2)
  - DUODENAL ULCER HAEMORRHAGE [None]
  - OFF LABEL USE [None]
